FAERS Safety Report 25989965 (Version 1)
Quarter: 2025Q4

REPORT INFORMATION
  Report Type: Spontaneous
  Country: US (occurrence: None)
  Receive Date: 20251101
  Receipt Date: 20251101
  Transmission Date: 20260117
  Serious: Yes (Disabling)
  Sender: FDA-CTU
  Company Number: None

PATIENT
  Age: 19 Year
  Sex: Male
  Weight: 78.75 kg

DRUGS (1)
  1. FINASTERIDE [Suspect]
     Active Substance: FINASTERIDE
     Indication: Androgenetic alopecia
     Dosage: OTHER QUANTITY : 1 TABLET(S);?FREQUENCY : DAILY;?
     Route: 048
     Dates: start: 20251010, end: 20251019

REACTIONS (1)
  - Adverse event [None]

NARRATIVE: CASE EVENT DATE: 20251017
